FAERS Safety Report 10143051 (Version 1)
Quarter: 2014Q2

REPORT INFORMATION
  Report Type: Spontaneous
  Country: GB (occurrence: GB)
  Receive Date: 20140430
  Receipt Date: 20140430
  Transmission Date: 20141212
  Serious: Yes (Other)
  Sender: FDA-Public Use
  Company Number: GB-BAYER-2014-059534

PATIENT
  Age: 42 Year
  Sex: Female
  Weight: 80 kg

DRUGS (3)
  1. MIRENA [Suspect]
     Indication: ENDOMETRIOSIS
     Dosage: 20 MCG/24HR, CONT
     Route: 015
     Dates: start: 20131112
  2. LANSOPRAZOLE [Concomitant]
  3. ZIRTEK [Concomitant]
     Indication: SEASONAL ALLERGY

REACTIONS (3)
  - Depression suicidal [Not Recovered/Not Resolved]
  - Device dislocation [Unknown]
  - Mood altered [Not Recovered/Not Resolved]
